FAERS Safety Report 10568133 (Version 2)
Quarter: 2014Q4

REPORT INFORMATION
  Report Type: Report from Study
  Country: BR (occurrence: BR)
  Receive Date: 20141106
  Receipt Date: 20141121
  Transmission Date: 20150529
  Serious: Yes (Other)
  Sender: FDA-Public Use
  Company Number: PHHY2014BR144397

PATIENT
  Sex: Female
  Weight: 4.49 kg

DRUGS (3)
  1. DOSTINEX [Suspect]
     Active Substance: CABERGOLINE
     Indication: ACROMEGALY
     Dosage: MATERNAL DOSE: 0.5 DF, QW2 (ON TUESDAY AND ON THURSDAY)
     Route: 064
  2. SANDOSTATIN LAR DEPOT [Suspect]
     Active Substance: OCTREOTIDE ACETATE
     Indication: ACROMEGALY
     Dosage: MATERNAL DOSE: 30 MG, 28 DAYS
     Route: 064
  3. DOSTINEX [Suspect]
     Active Substance: CABERGOLINE
     Dosage: MATERNAL DOSE:1 DF, QW2 (ON TUESDAY AND ON THURSDAY)
     Route: 064

REACTIONS (2)
  - Foetal exposure during pregnancy [Unknown]
  - Congenital cytomegalovirus infection [Recovering/Resolving]
